FAERS Safety Report 23330377 (Version 15)
Quarter: 2024Q3

REPORT INFORMATION
  Report Type: Report from Study
  Country: US (occurrence: US)
  Receive Date: 20231222
  Receipt Date: 20240906
  Transmission Date: 20241016
  Serious: Yes (Hospitalization, Other)
  Sender: UCB
  Company Number: US-UCBSA-2023058314

PATIENT
  Age: 66 Year
  Sex: Male

DRUGS (4)
  1. ROZANOLIXIZUMAB [Suspect]
     Active Substance: ROZANOLIXIZUMAB
     Indication: Myasthenia gravis
     Dosage: 840 MILLIGRAM, WEEKLY (QW) FOR 6 WEEKS
     Route: 058
     Dates: start: 20231207
  2. ROZANOLIXIZUMAB [Suspect]
     Active Substance: ROZANOLIXIZUMAB
     Dosage: 840 MILLIGRAM, WEEKLY (QW) FOR 6 WEEKS
     Route: 058
     Dates: start: 20240201
  3. ROZANOLIXIZUMAB [Suspect]
     Active Substance: ROZANOLIXIZUMAB
     Dosage: 840 MILLIGRAM (6ML), WEEKLY (QW) FOR 6 WEEKS
     Route: 058
     Dates: start: 20240422
  4. ROZANOLIXIZUMAB [Suspect]
     Active Substance: ROZANOLIXIZUMAB
     Dosage: 840 MILLIGRAM (6ML), ONCE WEEKLY FOR 6 WEEKS
     Route: 058
     Dates: start: 20240622

REACTIONS (18)
  - Choking [Recovered/Resolved]
  - Vomiting [Recovered/Resolved]
  - Myasthenia gravis [Not Recovered/Not Resolved]
  - Muscle spasms [Recovering/Resolving]
  - Gait inability [Recovering/Resolving]
  - Fatigue [Recovering/Resolving]
  - Diarrhoea [Recovering/Resolving]
  - Intentional dose omission [Unknown]
  - Dysphagia [Not Recovered/Not Resolved]
  - Dyspnoea [Not Recovered/Not Resolved]
  - Head discomfort [Not Recovered/Not Resolved]
  - Joint swelling [Recovered/Resolved]
  - Constipation [Recovered/Resolved]
  - Heart rate increased [Recovered/Resolved]
  - Fluid retention [Recovered/Resolved]
  - Mastication disorder [Not Recovered/Not Resolved]
  - Therapeutic product effect incomplete [Unknown]
  - Product dose omission issue [Unknown]

NARRATIVE: CASE EVENT DATE: 20231207
